FAERS Safety Report 9246219 (Version 1)
Quarter: 2013Q2

REPORT INFORMATION
  Report Type: Report from Study
  Country: FR (occurrence: FR)
  Receive Date: 20130422
  Receipt Date: 20130422
  Transmission Date: 20140414
  Serious: Yes (Death, Other)
  Sender: FDA-Public Use
  Company Number: FR-ROCHE-767483

PATIENT
  Age: 73 Year
  Sex: Male

DRUGS (15)
  1. RITUXIMAB [Suspect]
     Indication: B-CELL SMALL LYMPHOCYTIC LYMPHOMA STAGE II
     Route: 042
     Dates: start: 20080507, end: 20080812
  2. RITUXIMAB [Suspect]
     Indication: CHRONIC LYMPHOCYTIC LEUKAEMIA
  3. FLUDARA [Suspect]
     Indication: B-CELL SMALL LYMPHOCYTIC LYMPHOMA STAGE II
     Dosage: DOSE AND FREQUENCY: NOT REPORTED
     Route: 002
     Dates: start: 20080812, end: 20080814
  4. ENDOXAN [Suspect]
     Indication: B-CELL SMALL LYMPHOCYTIC LYMPHOMA STAGE II
     Dosage: DOESE AND FREQUENCY: NOT REPORTED
     Route: 002
     Dates: start: 20080812, end: 20080814
  5. NASONEX [Concomitant]
     Route: 065
  6. FLECAINE [Concomitant]
     Route: 065
  7. FLUINDIONE [Concomitant]
     Route: 065
  8. ENANTONE [Concomitant]
     Route: 065
  9. SECTRAL [Concomitant]
     Route: 065
  10. LERCANIDIPINE [Concomitant]
     Route: 065
  11. VASTAREL [Concomitant]
     Route: 065
  12. PARIET [Concomitant]
     Route: 065
  13. DOCETAXEL [Concomitant]
     Route: 065
     Dates: start: 201203
  14. ABIRATERONE ACETATE [Concomitant]
     Route: 065
     Dates: start: 201205
  15. NILUTAMIDE [Concomitant]
     Route: 065
     Dates: start: 201110

REACTIONS (1)
  - Prostate cancer [Fatal]
